FAERS Safety Report 14973604 (Version 1)
Quarter: 2018Q2

REPORT INFORMATION
  Report Type: Spontaneous
  Country: US (occurrence: US)
  Receive Date: 20180514
  Receipt Date: 20180514
  Transmission Date: 20180711
  Serious: Yes (Hospitalization)
  Sender: FDA-Public Use
  Company Number: None

PATIENT
  Age: 63 Year
  Sex: Female

DRUGS (2)
  1. SUTENT [Suspect]
     Active Substance: SUNITINIB MALATE
     Indication: GASTRIC CANCER
     Route: 048
     Dates: start: 20171221
  2. POT CL MICRO TAB [Concomitant]

REACTIONS (8)
  - Gastrointestinal infection [None]
  - Nasal ulcer [None]
  - Blepharochalasis [None]
  - Stomatitis [None]
  - Diarrhoea [None]
  - Peripheral swelling [None]
  - Vomiting [None]
  - Eye ulcer [None]

NARRATIVE: CASE EVENT DATE: 20180502
